FAERS Safety Report 6161450-9 (Version None)
Quarter: 2009Q2

REPORT INFORMATION
  Report Type: 
  Country: None (occurrence: None)
  Receive Date: 20090417
  Receipt Date: 20090417
  Transmission Date: 20091009
  Serious: Yes (Hospitalization)
  Sender: FDA-Public Use
  Company Number: None

PATIENT
  Age: 64 Year
  Sex: Female

DRUGS (1)
  1. DEPAKENE [Suspect]
     Indication: MOOD ALTERED
     Dosage: 750MG AM + 1000MG QHS  BID PO
     Route: 048
     Dates: start: 20060101

REACTIONS (2)
  - LETHARGY [None]
  - UNRESPONSIVE TO STIMULI [None]
